FAERS Safety Report 6450381-2 (Version None)
Quarter: 2009Q4

REPORT INFORMATION
  Report Type: 
  Country: None (occurrence: None)
  Receive Date: 20091123
  Receipt Date: 20091116
  Transmission Date: 20100525
  Serious: Yes (Death)
  Sender: FDA-Public Use
  Company Number: US-BRISTOL-MYERS SQUIBB COMPANY-14860860

PATIENT
  Age: 50 Year
  Sex: Female

DRUGS (2)
  1. CYTOXAN [Suspect]
     Indication: BREAST CANCER STAGE I
     Dates: start: 20091001, end: 20091001
  2. TAXOTERE [Suspect]
     Indication: BREAST CANCER STAGE I
     Dates: start: 20091001, end: 20091001

REACTIONS (2)
  - INTESTINAL PERFORATION [None]
  - SEPSIS [None]
